FAERS Safety Report 25017874 (Version 1)
Quarter: 2025Q1

REPORT INFORMATION
  Report Type: Spontaneous
  Country: US (occurrence: None)
  Receive Date: 20250226
  Receipt Date: 20250226
  Transmission Date: 20250408
  Serious: Yes (Disabling)
  Sender: FDA-CTU
  Company Number: None

PATIENT
  Age: 47 Year
  Sex: Female
  Weight: 110.25 kg

DRUGS (1)
  1. WEGOVY [Suspect]
     Active Substance: SEMAGLUTIDE
     Indication: Weight decreased
     Dosage: FREQUENCY : WEEKLY;?
     Route: 030

REACTIONS (2)
  - Abdominal pain upper [None]
  - Weight increased [None]

NARRATIVE: CASE EVENT DATE: 20240927
